FAERS Safety Report 9429441 (Version 1)
Quarter: 2013Q3

REPORT INFORMATION
  Report Type: Spontaneous
  Country: US (occurrence: US)
  Receive Date: 20130730
  Receipt Date: 20130730
  Transmission Date: 20140515
  Serious: No
  Sender: FDA-Public Use
  Company Number: US-ABBOTT-13P-163-1059216-00

PATIENT
  Age: 75 Year
  Sex: Male

DRUGS (2)
  1. NIASPAN (COATED) [Suspect]
     Indication: BLOOD CHOLESTEROL INCREASED
     Dates: start: 2010, end: 2012
  2. NIASPAN (COATED) [Suspect]
     Dates: start: 20130301

REACTIONS (2)
  - Tremor [Recovered/Resolved]
  - Head injury [Recovered/Resolved]
